FAERS Safety Report 23706104 (Version 4)
Quarter: 2024Q2

REPORT INFORMATION
  Report Type: Spontaneous
  Country: US (occurrence: US)
  Receive Date: 20240404
  Receipt Date: 20240529
  Transmission Date: 20240716
  Serious: No
  Sender: FDA-Public Use
  Company Number: US-SA-SAC20240329000085

PATIENT
  Age: 54 Year
  Sex: Female

DRUGS (2)
  1. DUPIXENT [Suspect]
     Active Substance: DUPILUMAB
     Indication: Asthma
     Dosage: 600 MG, 1X
     Route: 058
     Dates: start: 202401, end: 202401
  2. DUPIXENT [Suspect]
     Active Substance: DUPILUMAB
     Dosage: 300 MG, QOW
     Route: 058
     Dates: start: 202401, end: 20240423

REACTIONS (14)
  - COVID-19 [Recovered/Resolved]
  - Influenza [Recovered/Resolved]
  - Headache [Recovered/Resolved]
  - Ear discomfort [Recovered/Resolved]
  - Pain [Recovered/Resolved]
  - Fibromyalgia [Not Recovered/Not Resolved]
  - Headache [Not Recovered/Not Resolved]
  - Musculoskeletal stiffness [Unknown]
  - Condition aggravated [Unknown]
  - Sinus headache [Not Recovered/Not Resolved]
  - Condition aggravated [Not Recovered/Not Resolved]
  - Sinusitis [Unknown]
  - Condition aggravated [Unknown]
  - Arthralgia [Unknown]

NARRATIVE: CASE EVENT DATE: 20240101
